FAERS Safety Report 16293861 (Version 1)
Quarter: 2019Q2

REPORT INFORMATION
  Report Type: Spontaneous
  Country: US (occurrence: US)
  Receive Date: 20190509
  Receipt Date: 20190509
  Transmission Date: 20190711
  Serious: Yes (Other)
  Sender: FDA-Public Use
  Company Number: US-NOVOPROD-660843

PATIENT
  Age: 75 Year
  Sex: Male

DRUGS (2)
  1. LEVEMIR [Suspect]
     Active Substance: INSULIN DETEMIR
     Indication: TYPE 2 DIABETES MELLITUS
     Dosage: UNK
     Route: 058
  2. NOVOLOG [Suspect]
     Active Substance: INSULIN ASPART
     Indication: TYPE 2 DIABETES MELLITUS
     Dosage: 10 UNITS OR 12 UNITS
     Route: 058
     Dates: start: 2014

REACTIONS (5)
  - Retinal tear [Recovering/Resolving]
  - Diplopia [Recovering/Resolving]
  - Vision blurred [Recovering/Resolving]
  - Retinal disorder [Recovering/Resolving]
  - Retinal vascular disorder [Recovering/Resolving]

NARRATIVE: CASE EVENT DATE: 2018
